FAERS Safety Report 22101914 (Version 2)
Quarter: 2023Q4

REPORT INFORMATION
  Report Type: Report from Study
  Country: CA (occurrence: CA)
  Receive Date: 20230316
  Receipt Date: 20231213
  Transmission Date: 20240110
  Serious: Yes (Other)
  Sender: FDA-Public Use
  Company Number: CA-JNJFOC-20230130098

PATIENT
  Age: 25 Year
  Sex: Female
  Weight: 81 kg

DRUGS (1)
  1. REMICADE [Suspect]
     Active Substance: INFLIXIMAB
     Indication: Colitis ulcerative
     Dosage: INFUSION ON 14-JAN-2023 AND 11-MAR-2023 AND 15-JUN-2023
     Route: 041

REACTIONS (6)
  - Haematochezia [Not Recovered/Not Resolved]
  - Bronchitis [Recovering/Resolving]
  - Infectious mononucleosis [Recovered/Resolved]
  - COVID-19 [Unknown]
  - General physical health deterioration [Not Recovered/Not Resolved]
  - Exposure during pregnancy [Recovered/Resolved]

NARRATIVE: CASE EVENT DATE: 20221201
